FAERS Safety Report 5703684-0 (Version None)
Quarter: 2008Q2

REPORT INFORMATION
  Report Type: 
  Country: None (occurrence: None)
  Receive Date: 20080413
  Receipt Date: 20080401
  Transmission Date: 20081010
  Serious: Yes (Other)
  Sender: FDA-Public Use
  Company Number: PHHY2008GB01300

PATIENT
  Age: 67 Year
  Sex: Male

DRUGS (1)
  1. DESFERAL [Suspect]
     Dosage: UNK, UNK

REACTIONS (1)
  - RETINAL HAEMORRHAGE [None]
